FAERS Safety Report 9385125 (Version 2)
Quarter: 2013Q3

REPORT INFORMATION
  Report Type: Spontaneous
  Country: US (occurrence: None)
  Receive Date: 20130628
  Receipt Date: 20130702
  Transmission Date: 20140515
  Serious: Yes (Other)
  Sender: FDA-Public Use
  Company Number: 2013P1009248

PATIENT
  Age: 70 Year
  Sex: Female

DRUGS (2)
  1. INFUMORPH [Suspect]
     Indication: POST LAMINECTOMY SYNDROME
     Route: 037
  2. INFUMORPH [Suspect]
     Indication: SPINAL PAIN
     Route: 037

REACTIONS (7)
  - Fall [None]
  - Device breakage [None]
  - Underdose [None]
  - Drug effect incomplete [None]
  - Overdose [None]
  - Somnolence [None]
  - Hypotension [None]
